FAERS Safety Report 8482600-5 (Version None)
Quarter: 2012Q3

REPORT INFORMATION
  Report Type: 
  Country: None (occurrence: None)
  Receive Date: 20120702
  Receipt Date: 20120625
  Transmission Date: 20120928
  Serious: Yes (Hospitalization, Disabling, Other)
  Sender: FDA-Public Use
  Company Number: US-MERCK-1203USA03328

PATIENT
  Age: 70 Year
  Sex: Female
  Weight: 78 kg

DRUGS (9)
  1. VITAMINS (UNSPECIFIED) [Concomitant]
     Route: 065
     Dates: start: 19970101
  2. ALENDRONATE SODIUM [Suspect]
     Indication: OSTEOPOROSIS
     Route: 048
     Dates: start: 20080301, end: 20080901
  3. FOSAMAX [Suspect]
     Route: 048
     Dates: start: 19960101
  4. FOSAMAX PLUS D [Suspect]
     Route: 048
     Dates: start: 20080101
  5. FOSAMAX PLUS D [Suspect]
     Route: 048
     Dates: start: 20080101
  6. FOSAMAX PLUS D [Suspect]
     Indication: OSTEOPOROSIS
     Route: 048
     Dates: start: 20080101
  7. FOSAMAX [Suspect]
     Indication: OSTEOPOROSIS
     Route: 048
     Dates: start: 19970101
  8. FOSAMAX [Suspect]
     Route: 048
     Dates: start: 19980101, end: 20080101
  9. CALCIUM (UNSPECIFIED) [Concomitant]
     Route: 065
     Dates: start: 19970101

REACTIONS (51)
  - BONE DENSITY DECREASED [None]
  - SERUM FERRITIN INCREASED [None]
  - STRESS FRACTURE [None]
  - DIARRHOEA [None]
  - ASTHENIA [None]
  - DYSPHAGIA [None]
  - DEFICIENCY ANAEMIA [None]
  - HYPERTHYROIDISM [None]
  - HAEMATOCRIT DECREASED [None]
  - BREAST MASS [None]
  - OSTEOARTHRITIS [None]
  - SENILE OSTEOPOROSIS [None]
  - SCOLIOSIS [None]
  - ARTHRALGIA [None]
  - FRACTURE DELAYED UNION [None]
  - BLOOD IRON INCREASED [None]
  - VITAMIN D DEFICIENCY [None]
  - BURSITIS [None]
  - HYPERCHOLESTEROLAEMIA [None]
  - GOITRE [None]
  - GLAUCOMA [None]
  - HAEMOGLOBIN DECREASED [None]
  - LIMB DEFORMITY [None]
  - SPINAL DISORDER [None]
  - PALPITATIONS [None]
  - FEMUR FRACTURE [None]
  - VISUAL IMPAIRMENT [None]
  - POST PROCEDURAL HYPOTHYROIDISM [None]
  - VASCULAR CALCIFICATION [None]
  - THROAT IRRITATION [None]
  - HAEMOCHROMATOSIS [None]
  - BLOOD TEST ABNORMAL [None]
  - ARTHRITIS [None]
  - KYPHOSCOLIOSIS [None]
  - HYPOKALAEMIA [None]
  - OEDEMA PERIPHERAL [None]
  - APPENDIX DISORDER [None]
  - OSTEOPOROSIS [None]
  - HYPERPARATHYROIDISM [None]
  - ASTHMA [None]
  - CHRONIC SINUSITIS [None]
  - SLEEP DISORDER [None]
  - RIB FRACTURE [None]
  - LIPOHYPERTROPHY [None]
  - DIZZINESS [None]
  - OSTEOMALACIA [None]
  - IMPAIRED HEALING [None]
  - ABDOMINAL DISCOMFORT [None]
  - MENOPAUSE [None]
  - HUNGRY BONE SYNDROME [None]
  - KNEE DEFORMITY [None]
